FAERS Safety Report 21609089 (Version 3)
Quarter: 2023Q2

REPORT INFORMATION
  Report Type: Spontaneous
  Country: US (occurrence: US)
  Receive Date: 20221117
  Receipt Date: 20230523
  Transmission Date: 20230721
  Serious: No
  Sender: FDA-Public Use
  Company Number: US-PFIZER INC-PV202200104954

PATIENT
  Age: 59 Year
  Sex: Male

DRUGS (2)
  1. INLYTA [Suspect]
     Active Substance: AXITINIB
     Dosage: 5 MG
  2. INLYTA [Suspect]
     Active Substance: AXITINIB
     Dosage: 5 MG, 2X/DAY (1 TAB EVERY 12 HOURS TAKE WHOLE W/ WATER W/ OR W/O FOOD)
     Route: 048

REACTIONS (1)
  - Gait disturbance [Unknown]
